FAERS Safety Report 7705785-4 (Version None)
Quarter: 2011Q3

REPORT INFORMATION
  Report Type: 
  Country: None (occurrence: None)
  Receive Date: 20110824
  Receipt Date: 20110824
  Transmission Date: 20111222
  Serious: Yes (Other)
  Sender: FDA-Public Use
  Company Number: None

PATIENT
  Age: 43 Year
  Sex: Female
  Weight: 70.306 kg

DRUGS (2)
  1. TOPAMAX [Suspect]
     Indication: CONVULSION
     Dosage: 200 MG
     Route: 048
     Dates: start: 20101201, end: 20110603
  2. TOPAMAX [Suspect]
     Indication: HEADACHE
     Dosage: 200 MG
     Route: 048
     Dates: start: 20101201, end: 20110603

REACTIONS (5)
  - ERYTHEMA [None]
  - TOXIC EPIDERMAL NECROLYSIS [None]
  - BURNING SENSATION [None]
  - BLISTER [None]
  - STEVENS-JOHNSON SYNDROME [None]
